FAERS Safety Report 7941656-6 (Version None)
Quarter: 2011Q4

REPORT INFORMATION
  Report Type: 
  Country: None (occurrence: None)
  Receive Date: 20111128
  Receipt Date: 20111128
  Transmission Date: 20120403
  Serious: Yes (Other)
  Sender: FDA-Public Use
  Company Number: None

PATIENT

DRUGS (1)
  1. RESTASIS [Suspect]
     Indication: DRY EYE
     Dosage: ONE DROP
     Route: 047
     Dates: start: 20110924, end: 20111107

REACTIONS (9)
  - EYE INFECTION [None]
  - SKIN EXFOLIATION [None]
  - ERYTHEMA OF EYELID [None]
  - ERYTHEMA [None]
  - SECRETION DISCHARGE [None]
  - SWELLING FACE [None]
  - DRY SKIN [None]
  - EYE OEDEMA [None]
  - PRODUCT CONTAMINATION [None]
